FAERS Safety Report 6895827-0 (Version None)
Quarter: 2010Q3

REPORT INFORMATION
  Report Type: 
  Country: None (occurrence: None)
  Receive Date: 20100802
  Receipt Date: 20100721
  Transmission Date: 20110219
  Serious: Yes (Life-Threatening, Hospitalization)
  Sender: FDA-Public Use
  Company Number: CH-PFIZER INC-2010090865

PATIENT
  Age: 74 Year
  Sex: Female

DRUGS (12)
  1. LYRICA [Suspect]
     Indication: PAIN
     Dosage: 150 MG (MORNING), 75 MG (NOON), 75 MG (EVENING)
     Route: 048
     Dates: end: 20100627
  2. NOVALGIN [Suspect]
     Indication: PAIN
     Dosage: 500 MG, 3X/DAY
     Route: 048
     Dates: start: 20100506, end: 20100627
  3. IRFEN [Suspect]
     Indication: PAIN
     Dosage: 400 MG, 3X/DAY
     Route: 048
     Dates: end: 20100627
  4. ACETAMINOPHEN [Suspect]
     Indication: PAIN
     Dosage: UNK
     Route: 048
  5. COMILORIDE [Suspect]
     Indication: ESSENTIAL HYPERTENSION
     Dosage: 1 DF, 1X/DAY
     Route: 048
     Dates: end: 20100627
  6. LASIX [Suspect]
     Dosage: 30 MG, 3X/WEEK
     Route: 048
     Dates: end: 20100627
  7. SIRDALUD [Suspect]
     Indication: PAIN
     Dosage: 2 MG, 1X/DAY
     Route: 048
     Dates: end: 20100627
  8. OMEPRAZOLE [Suspect]
     Dosage: 40 MG, 1X/DAY
     Route: 048
     Dates: end: 20100627
  9. TEGRETOL [Concomitant]
     Indication: EPILEPSY
     Dosage: 400 MG, 2X/DAY
     Route: 048
  10. MADOPAR [Concomitant]
     Dosage: 125 MG, 1X/DAY
     Route: 048
  11. SIMVASTATIN [Concomitant]
     Indication: HYPERLIPIDAEMIA
     Dosage: 80 MG, 1X/DAY
     Route: 048
  12. SIMVASTATIN [Concomitant]
     Indication: ARTERIOSCLEROSIS

REACTIONS (3)
  - AGRANULOCYTOSIS [None]
  - LEUKOPENIA [None]
  - PYREXIA [None]
